FAERS Safety Report 5240440-4 (Version None)
Quarter: 2007Q1

REPORT INFORMATION
  Report Type: 
  Country: None (occurrence: None)
  Receive Date: 20061208
  Receipt Date: 20051031
  Transmission Date: 20070707
  Serious: Yes (Other)
  Sender: FDA-Public Use
  Company Number: 2005UW16527

PATIENT
  Age: 55 Year
  Sex: Female

DRUGS (1)
  1. CRESTOR [Suspect]
     Dosage: 10 MG PO
     Route: 048

REACTIONS (4)
  - HYPERSENSITIVITY [None]
  - RASH [None]
  - SWELLING FACE [None]
  - URTICARIA [None]
